FAERS Safety Report 11822355 (Version 2)
Quarter: 2016Q1

REPORT INFORMATION
  Report Type: Spontaneous
  Country: US (occurrence: US)
  Receive Date: 20151210
  Receipt Date: 20160202
  Transmission Date: 20160525
  Serious: No
  Sender: FDA-Public Use
  Company Number: US-JNJFOC-20150906029

PATIENT
  Age: 71 Year
  Sex: Female

DRUGS (2)
  1. IMBRUVICA [Suspect]
     Active Substance: IBRUTINIB
     Indication: CHRONIC LYMPHOCYTIC LEUKAEMIA
     Route: 048
     Dates: start: 2015
  2. IMBRUVICA [Suspect]
     Active Substance: IBRUTINIB
     Indication: CHRONIC LYMPHOCYTIC LEUKAEMIA
     Route: 048
     Dates: start: 20150602, end: 2015

REACTIONS (8)
  - Hypotension [Recovered/Resolved]
  - Neuralgia [Unknown]
  - Incorrect dose administered [Not Recovered/Not Resolved]
  - Blister [Recovering/Resolving]
  - Palpitations [Unknown]
  - Fatigue [Unknown]
  - Diarrhoea [Unknown]
  - Nail disorder [Unknown]

NARRATIVE: CASE EVENT DATE: 2015
